FAERS Safety Report 18909954 (Version 1)
Quarter: 2021Q1

REPORT INFORMATION
  Report Type: Spontaneous
  Country: US (occurrence: US)
  Receive Date: 20210218
  Receipt Date: 20210218
  Transmission Date: 20210420
  Serious: Yes (Life-Threatening, Hospitalization, Disabling, Other)
  Sender: FDA-Public Use
  Company Number: None

PATIENT
  Age: 58 Year
  Sex: Female
  Weight: 54 kg

DRUGS (18)
  1. OXYCONTIN [Concomitant]
     Active Substance: OXYCODONE HYDROCHLORIDE
  2. HUMIRA [Suspect]
     Active Substance: ADALIMUMAB
     Indication: CROHN^S DISEASE
     Dosage: ?          OTHER FREQUENCY:EVERY 10 DAYS;?
     Route: 058
     Dates: start: 20080820, end: 20191223
  3. SIMETHICONE (DIMETHICONE) [Concomitant]
     Active Substance: DIMETHICONE
  4. NOVOLOG PEN [Concomitant]
  5. TRELEGY ELLIPTA [Concomitant]
     Active Substance: FLUTICASONE FUROATE\UMECLIDINIUM BROMIDE\VILANTEROL TRIFENATATE
  6. MAGNESIUM [Concomitant]
     Active Substance: MAGNESIUM
  7. LISINOPRIL. [Concomitant]
     Active Substance: LISINOPRIL
  8. BP CUFF [Concomitant]
  9. ALBUTERNOL INHALER [Concomitant]
  10. LEVIMER [Concomitant]
  11. PREDNISONE. [Concomitant]
     Active Substance: PREDNISONE
  12. FIORICET [Concomitant]
     Active Substance: ACETAMINOPHEN\BUTALBITAL\CAFFEINE
  13. LAMOTRIGINE. [Concomitant]
     Active Substance: LAMOTRIGINE
  14. FAMOTIDINE. [Concomitant]
     Active Substance: FAMOTIDINE
  15. OXYCODONE [Concomitant]
     Active Substance: OXYCODONE
  16. FOLIC ACID. [Concomitant]
     Active Substance: FOLIC ACID
  17. EXCEDRIN TENSION [Concomitant]
  18. ENOXAPARIN SODIUM. [Concomitant]
     Active Substance: ENOXAPARIN SODIUM

REACTIONS (7)
  - Pneumonia [None]
  - Crohn^s disease [None]
  - Procedural pain [None]
  - Gangrene [None]
  - Sepsis [None]
  - Leg amputation [None]
  - Deep vein thrombosis [None]

NARRATIVE: CASE EVENT DATE: 20170125
